FAERS Safety Report 6204944-X (Version None)
Quarter: 2009Q2

REPORT INFORMATION
  Report Type: 
  Country: None (occurrence: None)
  Receive Date: 20090526
  Receipt Date: 20090512
  Transmission Date: 20091009
  Serious: Yes (Other)
  Sender: FDA-Public Use
  Company Number: 2009AP001720

PATIENT
  Age: 79 Year
  Sex: Male

DRUGS (5)
  1. LISINOPRIL [Suspect]
     Dosage: 5 MG;QD
  2. ACETYLSALICYLIC (ACETYLSALICYLIC ACID) [Concomitant]
  3. METOPROLOL TARTRATE [Concomitant]
  4. ATORVASTATIN CALCIUM [Concomitant]
  5. GLYCERYL TRINITRATE (GLYCERYL TRINITRATE) [Concomitant]

REACTIONS (8)
  - ABDOMINAL PAIN [None]
  - ANAPHYLACTOID REACTION [None]
  - DEVICE INTERACTION [None]
  - DIALYSIS [None]
  - DIALYSIS DEVICE COMPLICATION [None]
  - DIARRHOEA [None]
  - HAEMORRHOIDS [None]
  - RECTAL HAEMORRHAGE [None]
